FAERS Safety Report 5226627-5 (Version None)
Quarter: 2007Q1

REPORT INFORMATION
  Report Type: 
  Country: None (occurrence: None)
  Receive Date: 20070201
  Receipt Date: 20070124
  Transmission Date: 20070707
  Serious: Yes (Other)
  Sender: FDA-Public Use
  Company Number: GB-PFIZER INC-2007007471

PATIENT
  Sex: Male

DRUGS (1)
  1. FRAGMIN [Suspect]
     Indication: EMBOLISM
     Dosage: TEXT:18000IU/0.72ML

REACTIONS (5)
  - BACK PAIN [None]
  - HYPOAESTHESIA [None]
  - MUSCULAR WEAKNESS [None]
  - PARAESTHESIA [None]
  - THROMBOSIS [None]
